FAERS Safety Report 10787731 (Version 1)
Quarter: 2015Q1

REPORT INFORMATION
  Report Type: Report from Study
  Country: US (occurrence: US)
  Receive Date: 20150212
  Receipt Date: 20150212
  Transmission Date: 20150721
  Serious: Yes (Hospitalization)
  Sender: FDA-Public Use
  Company Number: US-BIOGENIDEC-2015BI011582

PATIENT
  Age: 38 Year
  Sex: Female

DRUGS (1)
  1. TECFIDERA [Suspect]
     Active Substance: DIMETHYL FUMARATE
     Indication: MULTIPLE SCLEROSIS
     Dates: start: 201401, end: 201501

REACTIONS (3)
  - Hysterectomy [Unknown]
  - Cardiac function disturbance postoperative [Unknown]
  - Procedural hypotension [Unknown]

NARRATIVE: CASE EVENT DATE: 20150123
